FAERS Safety Report 7944714-5 (Version None)
Quarter: 2011Q4

REPORT INFORMATION
  Report Type: 
  Country: None (occurrence: None)
  Receive Date: 20111129
  Receipt Date: 20111124
  Transmission Date: 20120403
  Serious: Yes (Other)
  Sender: FDA-Public Use
  Company Number: JP-PFIZER INC-2011289374

PATIENT
  Sex: Male

DRUGS (1)
  1. CELECOXIB [Suspect]
     Dosage: UNK
     Route: 048
     Dates: start: 20111005, end: 20111006

REACTIONS (1)
  - URINARY RETENTION [None]
